FAERS Safety Report 17812961 (Version 1)
Quarter: 2020Q2

REPORT INFORMATION
  Report Type: Spontaneous
  Country: US (occurrence: US)
  Receive Date: 20200521
  Receipt Date: 20200521
  Transmission Date: 20200714
  Serious: Yes (Other)
  Sender: FDA-Public Use
  Company Number: US-MYLANLABS-2020M1050766

PATIENT
  Age: 8 Year
  Sex: Male

DRUGS (4)
  1. PREDNISONE. [Suspect]
     Active Substance: PREDNISONE
     Dosage: TAPERED OVER A PERIOD OF SIX MONTHS
     Route: 048
  2. PREDNISONE. [Suspect]
     Active Substance: PREDNISONE
     Indication: IDIOPATHIC ORBITAL INFLAMMATION
     Dosage: TAPERING DOSES
     Route: 048
     Dates: start: 2017
  3. METHOTREXATE. [Concomitant]
     Active Substance: METHOTREXATE
     Indication: IDIOPATHIC ORBITAL INFLAMMATION
     Dosage: UNK
     Route: 065
  4. PREDNISONE. [Suspect]
     Active Substance: PREDNISONE
     Dosage: TAPERED OVER A PERIOD OF SIX MONTHS
     Route: 048

REACTIONS (3)
  - Crohn^s disease [Unknown]
  - Weight increased [Unknown]
  - Symptom masked [Unknown]
